FAERS Safety Report 7392837-4 (Version None)
Quarter: 2011Q2

REPORT INFORMATION
  Report Type: 
  Country: None (occurrence: None)
  Receive Date: 20110404
  Receipt Date: 20110329
  Transmission Date: 20111010
  Serious: Yes (Hospitalization)
  Sender: FDA-Public Use
  Company Number: FR-PFIZER INC-2011069100

PATIENT
  Age: 56 Year
  Sex: Male

DRUGS (15)
  1. DOXORUBICIN HCL [Suspect]
     Indication: GLIOBLASTOMA
  2. HOLOXAN [Suspect]
     Indication: TERATOMA
     Dosage: 3.9 G, 1X/DAY
     Route: 042
     Dates: start: 20090817, end: 20090819
  3. HOLOXAN [Suspect]
     Indication: GLIOBLASTOMA
  4. PRIMPERAN TAB [Suspect]
     Indication: TERATOMA
     Dosage: 20 MG, 2X/DAY
     Route: 042
     Dates: start: 20090817, end: 20090822
  5. MESNA [Suspect]
     Indication: TERATOMA
     Dosage: 4 G, 1X/DAY
     Route: 042
     Dates: start: 20090817, end: 20090820
  6. ZOPHREN [Suspect]
     Indication: GLIOBLASTOMA
  7. SOLU-MEDROL [Suspect]
     Indication: GLIOBLASTOMA
  8. EMEND [Suspect]
     Indication: TERATOMA
     Dosage: UNK
     Route: 048
     Dates: start: 20090817, end: 20090818
  9. SOLU-MEDROL [Suspect]
     Indication: TERATOMA
     Dosage: 80 MG, 1X/DAY
     Route: 042
     Dates: start: 20090817, end: 20090820
  10. EMEND [Suspect]
     Indication: GLIOBLASTOMA
     Dosage: UNK
     Dates: start: 20090818, end: 20090819
  11. ZOPHREN [Suspect]
     Indication: TERATOMA
     Dosage: 8 MG, 1X/DAY
     Route: 042
     Dates: start: 20090817, end: 20090820
  12. PRIMPERAN TAB [Suspect]
     Indication: GLIOBLASTOMA
  13. MESNA [Suspect]
     Indication: GLIOBLASTOMA
  14. INNOHEP [Concomitant]
  15. DOXORUBICIN HCL [Suspect]
     Indication: TERATOMA
     Dosage: 59 MG, 1X/DAY
     Route: 042
     Dates: start: 20090817, end: 20090818

REACTIONS (1)
  - ENCEPHALOPATHY [None]
